FAERS Safety Report 10993304 (Version 7)
Quarter: 2016Q2

REPORT INFORMATION
  Report Type: Report from Study
  Country: FR (occurrence: FR)
  Receive Date: 20150407
  Receipt Date: 20160510
  Transmission Date: 20160815
  Serious: Yes (Other)
  Sender: FDA-Public Use
  Company Number: FR-ROCHE-1466650

PATIENT
  Age: 85 Year
  Sex: Female

DRUGS (6)
  1. RANIBIZUMAB [Suspect]
     Active Substance: RANIBIZUMAB
     Dosage: RIGHT EYE
     Route: 050
     Dates: start: 20140620, end: 20140620
  2. RANIBIZUMAB [Suspect]
     Active Substance: RANIBIZUMAB
     Indication: RETINAL VEIN OCCLUSION
     Dosage: RIGHT EYE
     Route: 050
     Dates: start: 20140425, end: 20140425
  3. BETADINE [Suspect]
     Active Substance: POVIDONE-IODINE
     Indication: ANTI-INFECTIVE THERAPY
     Route: 065
     Dates: start: 20140425, end: 20140620
  4. RANIBIZUMAB [Suspect]
     Active Substance: RANIBIZUMAB
     Dosage: RIGHT EYE
     Route: 050
     Dates: start: 20140523
  5. BETADINE [Suspect]
     Active Substance: POVIDONE-IODINE
     Route: 065
     Dates: start: 20140620, end: 20140620
  6. RANIBIZUMAB [Suspect]
     Active Substance: RANIBIZUMAB
     Route: 050
     Dates: start: 201502, end: 201502

REACTIONS (8)
  - Retinal vascular thrombosis [Recovering/Resolving]
  - Ocular discomfort [Recovered/Resolved]
  - Eye paraesthesia [Recovering/Resolving]
  - Visual acuity reduced [Unknown]
  - Eyelids pruritus [Recovered/Resolved]
  - Eye pruritus [Unknown]
  - Drug ineffective [Unknown]
  - Ocular discomfort [Unknown]

NARRATIVE: CASE EVENT DATE: 20140425
